FAERS Safety Report 4410538-9 (Version None)
Quarter: 2004Q3

REPORT INFORMATION
  Report Type: 
  Country: None (occurrence: None)
  Receive Date: 20040726
  Receipt Date: 20040721
  Transmission Date: 20050211
  Serious: Yes (Other)
  Sender: FDA-Public Use
  Company Number: 2004UW10654

PATIENT
  Age: 49 Year
  Sex: Female
  Weight: 195 kg

DRUGS (12)
  1. NEXIUM [Suspect]
     Dosage: 40 MG PO
     Route: 048
     Dates: start: 20040507, end: 20040507
  2. PRILOSEC [Suspect]
     Dosage: 20 MG
  3. PRILOSEC [Suspect]
     Dosage: 40 MG
     Dates: start: 20030301
  4. DILANTIN [Concomitant]
  5. VITAMIN B12 FOR INJECTION [Concomitant]
  6. LAMICTAL [Concomitant]
  7. SOMA [Concomitant]
  8. REMERON [Concomitant]
  9. STADOL [Concomitant]
  10. VICODIN [Concomitant]
  11. AMBIEN [Concomitant]
  12. XANAX [Concomitant]

REACTIONS (3)
  - CONTUSION [None]
  - MEDICATION ERROR [None]
  - THROMBOCYTOPENIA [None]
